FAERS Safety Report 23980150 (Version 1)
Quarter: 2024Q2

REPORT INFORMATION
  Report Type: Spontaneous
  Country: US (occurrence: US)
  Receive Date: 20240617
  Receipt Date: 20240617
  Transmission Date: 20240715
  Serious: No
  Sender: FDA-Public Use
  Company Number: US-TEVA-VS-3206429

PATIENT
  Age: 63 Year
  Sex: Female

DRUGS (1)
  1. CYCLOSPORINE MODIFIED [Suspect]
     Active Substance: CYCLOSPORINE
     Indication: Urticaria
     Dosage: 25MG TWICE A DAY
     Route: 065

REACTIONS (2)
  - Urticaria [Unknown]
  - Laryngitis [Unknown]
